FAERS Safety Report 24305930 (Version 1)
Quarter: 2024Q3

REPORT INFORMATION
  Report Type: Report from Study
  Country: US (occurrence: US)
  Receive Date: 20240911
  Receipt Date: 20240911
  Transmission Date: 20241016
  Serious: Yes (Hospitalization)
  Sender: DECIPHERA PHARMACEUTICALS
  Company Number: US-DECIPHERA PHARMACEUTICALS LLC-2024US000775

PATIENT
  Age: 72 Year
  Sex: Male
  Weight: 89.977 kg

DRUGS (2)
  1. QINLOCK [Suspect]
     Active Substance: RIPRETINIB
     Indication: Anal cancer
     Dosage: 150 MILLIGRAM, QD
     Route: 048
     Dates: start: 20240713, end: 202408
  2. QINLOCK [Suspect]
     Active Substance: RIPRETINIB
     Indication: Malignant melanoma
     Dosage: 150 MILLIGRAM, QD
     Route: 048
     Dates: start: 20240827

REACTIONS (2)
  - Leukapheresis [Unknown]
  - Cryotherapy [Unknown]
